FAERS Safety Report 6317441-8 (Version None)
Quarter: 2009Q3

REPORT INFORMATION
  Report Type: 
  Country: None (occurrence: None)
  Receive Date: 20090820
  Receipt Date: 20090820
  Transmission Date: 20100115
  Serious: Yes (Other)
  Sender: FDA-Public Use
  Company Number: None

PATIENT
  Age: 52 Year
  Sex: Female
  Weight: 62.1428 kg

DRUGS (2)
  1. MACROBID [Suspect]
     Indication: CYSTITIS ESCHERICHIA
     Dosage: 100 MG 2 X DAY 1 PILL
     Dates: start: 20090731
  2. MACROBID [Suspect]
     Indication: CYSTITIS ESCHERICHIA
     Dosage: 100 MG 2 X DAY 1 PILL
     Dates: start: 20090801

REACTIONS (7)
  - ASTHENIA [None]
  - CHILLS [None]
  - DYSARTHRIA [None]
  - PAIN [None]
  - SKIN BURNING SENSATION [None]
  - VOMITING [None]
  - YELLOW SKIN [None]
